FAERS Safety Report 16942553 (Version 3)
Quarter: 2020Q1

REPORT INFORMATION
  Report Type: Spontaneous
  Country: US (occurrence: US)
  Receive Date: 20191021
  Receipt Date: 20200121
  Transmission Date: 20200409
  Serious: Yes (Death, Hospitalization, Other)
  Sender: FDA-Public Use
  Company Number: US-PFIZER INC-2019453287

PATIENT
  Age: 74 Year
  Sex: Male

DRUGS (1)
  1. VYNDAQEL [Suspect]
     Active Substance: TAFAMIDIS MEGLUMINE
     Indication: FAMILIAL AMYLOIDOSIS
     Dosage: 80 MG, UNK (NO DOSE GIVEN)

REACTIONS (16)
  - Chronic left ventricular failure [Fatal]
  - Cardiac amyloidosis [Unknown]
  - Pleural effusion [Unknown]
  - Dyspnoea [Unknown]
  - Asthenia [Unknown]
  - Renal impairment [Unknown]
  - Gait disturbance [Unknown]
  - Pulmonary arterial hypertension [Unknown]
  - Hallucination [Unknown]
  - Acute respiratory failure [Unknown]
  - Cognitive disorder [Unknown]
  - Renal failure [Unknown]
  - Atrial fibrillation [Unknown]
  - Pain [Unknown]
  - Scoliosis [Unknown]
  - Anxiety [Unknown]

NARRATIVE: CASE EVENT DATE: 20191010
